FAERS Safety Report 5049086-4 (Version None)
Quarter: 2006Q3

REPORT INFORMATION
  Report Type: 
  Country: None (occurrence: None)
  Receive Date: 20060706
  Receipt Date: 20060623
  Transmission Date: 20061208
  Serious: Yes (Hospitalization, Other)
  Sender: FDA-Public Use
  Company Number: 2006069957

PATIENT
  Age: 25 Year
  Sex: Male

DRUGS (8)
  1. LYRICA [Suspect]
     Indication: PARALYSIS
     Dosage: 600 MG (300 MG, 2 IN 1 D), ORAL
     Route: 048
     Dates: start: 20051201
  2. COCAINE [Concomitant]
  3. ROHYPNOL (FLUNITRAZEPAM) [Concomitant]
  4. DIAZEPAM [Concomitant]
  5. VIVAL (DIAZEPAM) [Concomitant]
  6. AMPHETAMINE (AMFETAMINE) [Concomitant]
  7. CARISOPRODOL [Concomitant]
  8. CLONAZEPAM [Concomitant]

REACTIONS (9)
  - ABNORMAL BEHAVIOUR [None]
  - AGGRESSION [None]
  - ALCOHOL USE [None]
  - DRUG ABUSER [None]
  - DRUG INEFFECTIVE [None]
  - FEELING ABNORMAL [None]
  - INCORRECT DOSE ADMINISTERED [None]
  - MENTAL DISORDER [None]
  - OBSESSIVE THOUGHTS [None]
